FAERS Safety Report 6482952-1 (Version None)
Quarter: 2009Q4

REPORT INFORMATION
  Report Type: 
  Country: None (occurrence: None)
  Receive Date: 20091123
  Receipt Date: 20090818
  Transmission Date: 20100525
  Serious: No
  Sender: FDA-Public Use
  Company Number: 8050626

PATIENT
  Age: 26 Year
  Sex: Female
  Weight: 58.06 kg

DRUGS (4)
  1. CIMZIA [Suspect]
     Indication: CROHN'S DISEASE
     Dosage: 400 MG /M SC
     Route: 058
  2. AMBIEN [Concomitant]
  3. TRAMADOL HCL [Concomitant]
  4. ACIDOPHILUS [Concomitant]

REACTIONS (5)
  - ARTHRALGIA [None]
  - DRY EYE [None]
  - FUNGAL INFECTION [None]
  - MENSTRUATION IRREGULAR [None]
  - RASH [None]
